FAERS Safety Report 10607847 (Version 3)
Quarter: 2015Q1

REPORT INFORMATION
  Report Type: Spontaneous
  Country: US (occurrence: US)
  Receive Date: 20141125
  Receipt Date: 20150119
  Transmission Date: 20150720
  Serious: No
  Sender: FDA-Public Use
  Company Number: US-PFIZER INC-2014321157

PATIENT
  Age: 17 Year
  Sex: Male
  Weight: 109 kg

DRUGS (1)
  1. QUILLIVANT XR [Suspect]
     Active Substance: METHYLPHENIDATE HYDROCHLORIDE
     Indication: ATTENTION DEFICIT/HYPERACTIVITY DISORDER
     Dosage: LOW DOSE

REACTIONS (3)
  - Communication disorder [Unknown]
  - Irritability [Unknown]
  - Therapeutic response unexpected [Unknown]
